FAERS Safety Report 4886466-1 (Version None)
Quarter: 2006Q1

REPORT INFORMATION
  Report Type: 
  Country: None (occurrence: None)
  Receive Date: 20060120
  Receipt Date: 20060110
  Transmission Date: 20060701
  Serious: Yes (Death)
  Sender: FDA-Public Use
  Company Number: JP-BRISTOL-MYERS SQUIBB COMPANY-13244124

PATIENT
  Age: 78 Year
  Sex: Female

DRUGS (4)
  1. MAXIPIME [Suspect]
     Indication: FEBRILE NEUTROPENIA
     Dates: start: 20051003, end: 20051026
  2. TARGOCID [Concomitant]
     Dates: start: 20051018, end: 20051026
  3. FUNGUARD [Concomitant]
     Dates: start: 20051004, end: 20051026
  4. GRAN [Concomitant]
     Dates: start: 20051018, end: 20051026

REACTIONS (1)
  - LUNG INFILTRATION [None]
